FAERS Safety Report 19860017 (Version 1)
Quarter: 2021Q3

REPORT INFORMATION
  Report Type: Report from Study
  Country: RU (occurrence: RU)
  Receive Date: 20210921
  Receipt Date: 20210921
  Transmission Date: 20211014
  Serious: Yes (Other)
  Sender: FDA-Public Use
  Company Number: RU-TOPROL-2021000202

PATIENT
  Age: 55 Year
  Sex: Male
  Weight: 74 kg

DRUGS (2)
  1. BRILINTA [Suspect]
     Active Substance: TICAGRELOR
     Route: 048
     Dates: start: 20210609
  2. BETALOC [Suspect]
     Active Substance: METOPROLOL
     Route: 048
     Dates: start: 20210609

REACTIONS (2)
  - Product use in unapproved indication [Unknown]
  - Heart rate decreased [Not Recovered/Not Resolved]
